FAERS Safety Report 5612549-4 (Version None)
Quarter: 2008Q1

REPORT INFORMATION
  Report Type: 
  Country: None (occurrence: None)
  Receive Date: 20080204
  Receipt Date: 20080123
  Transmission Date: 20080703
  Serious: Yes (Disabling)
  Sender: FDA-Public Use
  Company Number: KR-ASTRAZENECA-2008AP00576

PATIENT
  Age: 30 Year
  Sex: Female

DRUGS (1)
  1. MARCAINE [Suspect]
     Indication: CAESAREAN SECTION
     Route: 037
     Dates: start: 20070801

REACTIONS (1)
  - CAUDA EQUINA SYNDROME [None]
